FAERS Safety Report 25024723 (Version 1)
Quarter: 2025Q1

REPORT INFORMATION
  Report Type: Report from Study
  Country: CA (occurrence: CA)
  Receive Date: 20250228
  Receipt Date: 20250228
  Transmission Date: 20250409
  Serious: Yes (Hospitalization)
  Sender: EISAI
  Company Number: CA-Eisai-EC-2025-184988

PATIENT
  Age: 68 Year
  Sex: Male

DRUGS (3)
  1. LENVIMA [Suspect]
     Active Substance: LENVATINIB
     Indication: Hepatocellular carcinoma
     Dates: start: 20211018, end: 20241120
  2. LENVIMA [Suspect]
     Active Substance: LENVATINIB
     Dates: start: 20241210
  3. LENVIMA [Suspect]
     Active Substance: LENVATINIB

REACTIONS (1)
  - Internal haemorrhage [Unknown]
